FAERS Safety Report 10378146 (Version 1)
Quarter: 2014Q3

REPORT INFORMATION
  Report Type: Spontaneous
  Country: IT (occurrence: IT)
  Receive Date: 20140812
  Receipt Date: 20140812
  Transmission Date: 20150326
  Serious: Yes (Other)
  Sender: FDA-Public Use
  Company Number: IT-ELI_LILLY_AND_COMPANY-IT201408000178

PATIENT
  Age: 9 Year
  Sex: Female

DRUGS (1)
  1. HUMATROPE [Suspect]
     Active Substance: SOMATROPIN
     Indication: TURNER^S SYNDROME
     Dosage: 1.1 MG, QD
     Route: 058
     Dates: start: 20140108, end: 20140724

REACTIONS (2)
  - Haemangioma [Unknown]
  - Lymphangioma [Unknown]

NARRATIVE: CASE EVENT DATE: 201404
